FAERS Safety Report 12498538 (Version 2)
Quarter: 2016Q2

REPORT INFORMATION
  Report Type: Spontaneous
  Country: IT (occurrence: IT)
  Receive Date: 20160627
  Receipt Date: 20160629
  Transmission Date: 20160815
  Serious: Yes (Hospitalization)
  Sender: FDA-Public Use
  Company Number: IT-UCBSA-2016023258

PATIENT
  Age: 81 Year
  Sex: Male

DRUGS (13)
  1. MEROPENEM HIKMA [Suspect]
     Active Substance: MEROPENEM
     Indication: SEPSIS
     Dosage: DAILY DOSE OF 500 MG
     Route: 042
     Dates: start: 20160510, end: 20160524
  2. BENADON [Concomitant]
     Active Substance: PYRIDOXINE HYDROCHLORIDE
     Indication: PRODUCT USED FOR UNKNOWN INDICATION
     Dosage: UNK
  3. VANCOMICINA HIKMA [Concomitant]
     Active Substance: VANCOMYCIN HYDROCHLORIDE
     Indication: SEPSIS
     Dosage: 250 MG, UNK
     Dates: start: 20160510, end: 20160512
  4. KEPPRA [Suspect]
     Active Substance: LEVETIRACETAM
     Dosage: STRENGTH-500 MG, DAILY DOSE 500 MG
     Route: 048
     Dates: start: 20160513, end: 20160525
  5. ZYVOXID [Suspect]
     Active Substance: LINEZOLID
     Indication: SEPSIS
     Dosage: 2 BAGS 300 ML OF 2 MG/ML, DAILY DOSE OF 1200 MG
     Route: 042
     Dates: start: 20160513
  6. AMIODARONE [Concomitant]
     Active Substance: AMIODARONE
     Indication: PRODUCT USED FOR UNKNOWN INDICATION
     Dosage: 200 MG, UNK
     Route: 048
  7. COUMADIN [Concomitant]
     Active Substance: WARFARIN SODIUM
     Indication: PRODUCT USED FOR UNKNOWN INDICATION
     Dosage: STRENGTH- 5 MG, UNK
  8. KEPPRA [Suspect]
     Active Substance: LEVETIRACETAM
     Indication: EPILEPSY
     Dosage: STRENGTH-500 MG, DAILY DOSE 500 MG
     Route: 048
     Dates: start: 20160421, end: 20160509
  9. LEVETIRACETAM. [Suspect]
     Active Substance: LEVETIRACETAM
     Indication: EPILEPSY
     Dosage: STRENGTH- 500 MG, DAILY DOSE 500 MG
     Route: 048
     Dates: start: 20160510, end: 20160512
  10. ACETYLSALICYLIC ACID [Concomitant]
     Active Substance: ASPIRIN
     Indication: PRODUCT USED FOR UNKNOWN INDICATION
     Dosage: UNK
  11. ATARAX [Concomitant]
     Active Substance: HYDROXYZINE\HYDROXYZINE HYDROCHLORIDE
     Indication: PRODUCT USED FOR UNKNOWN INDICATION
     Dosage: UNK
  12. OMEPRAZOLE. [Concomitant]
     Active Substance: OMEPRAZOLE
     Indication: PRODUCT USED FOR UNKNOWN INDICATION
     Dosage: UNK
  13. EPOETIN BETA [Concomitant]
     Active Substance: ERYTHROPOIETIN
     Indication: PRODUCT USED FOR UNKNOWN INDICATION

REACTIONS (1)
  - Skin exfoliation [Recovered/Resolved]

NARRATIVE: CASE EVENT DATE: 20160515
